FAERS Safety Report 9852752 (Version 1)
Quarter: 2014Q1

REPORT INFORMATION
  Report Type: Spontaneous
  Country: US (occurrence: US)
  Receive Date: 20140129
  Receipt Date: 20140129
  Transmission Date: 20141002
  Serious: Yes (Other)
  Sender: FDA-Public Use
  Company Number: US-BAYER-2014-014732

PATIENT
  Age: 40 Year
  Sex: Female
  Weight: 71.66 kg

DRUGS (5)
  1. YASMIN [Suspect]
     Dosage: UNK
  2. GIANVI [Suspect]
     Dosage: UNK
  3. OCELLA [Suspect]
     Dosage: UNK
  4. AMOXICILLIN [Concomitant]
     Dosage: 875 MG, UNK
     Route: 048
     Dates: start: 20110515
  5. MULTIVITAMIN [Concomitant]
     Dosage: UNK, 1 DAILY
     Route: 048
     Dates: start: 20110805

REACTIONS (2)
  - Cholecystitis chronic [None]
  - Cholecystectomy [None]
